FAERS Safety Report 8314484-X (Version None)
Quarter: 2012Q2

REPORT INFORMATION
  Report Type: 
  Country: None (occurrence: None)
  Receive Date: 20120426
  Receipt Date: 20120417
  Transmission Date: 20120825
  Serious: Yes (Hospitalization)
  Sender: FDA-Public Use
  Company Number: US-ACTELION-A-US2011-47985

PATIENT

DRUGS (2)
  1. TRACLEER [Suspect]
     Indication: PULMONARY ARTERIAL HYPERTENSION
     Dosage: UNK
     Route: 048
     Dates: start: 20100317
  2. VIAGRA [Concomitant]

REACTIONS (6)
  - HEAD INJURY [None]
  - FALL [None]
  - HYPOTENSION [None]
  - CATHETERISATION CARDIAC [None]
  - SYNCOPE [None]
  - BLOOD POTASSIUM DECREASED [None]
